FAERS Safety Report 19687024 (Version 1)
Quarter: 2021Q3

REPORT INFORMATION
  Report Type: Spontaneous
  Country: FR (occurrence: FR)
  Receive Date: 20210811
  Receipt Date: 20210811
  Transmission Date: 20211014
  Serious: Yes (Other)
  Sender: FDA-Public Use
  Company Number: FR-ORGANON-O2108FRA000301

PATIENT
  Sex: Female

DRUGS (1)
  1. LOSARTAN ZENTIVA 50MG, COMPRIM? PELLICUL? S?CABLE [Suspect]
     Active Substance: LOSARTAN
     Indication: HYPERTENSION
     Dosage: 50 MILLIGRAM, QD, SCORED FILM COATED TABLET; DURATION: 1.5 MONTHS
     Route: 048

REACTIONS (2)
  - Weight decreased [Not Recovered/Not Resolved]
  - Fatigue [Not Recovered/Not Resolved]
